FAERS Safety Report 13167303 (Version 1)
Quarter: 2017Q1

REPORT INFORMATION
  Report Type: Report from Study
  Country: US (occurrence: US)
  Receive Date: 20170131
  Receipt Date: 20170131
  Transmission Date: 20170428
  Serious: Yes (Other)
  Sender: FDA-Public Use
  Company Number: US-AMGEN-USASL2017011968

PATIENT
  Sex: Female

DRUGS (3)
  1. ENBREL [Suspect]
     Active Substance: ETANERCEPT
     Indication: RHEUMATOID ARTHRITIS
     Dosage: 25 MG, 2 TIMES/WK
     Route: 065
     Dates: start: 2008
  2. METHOTREXATE. [Concomitant]
     Active Substance: METHOTREXATE
     Dosage: UNK
  3. TRAMADOL. [Concomitant]
     Active Substance: TRAMADOL
     Dosage: UNK

REACTIONS (11)
  - Unevaluable event [Unknown]
  - Injection site pain [Unknown]
  - Injection site haemorrhage [Unknown]
  - Rheumatoid arthritis [Recovered/Resolved]
  - Sinusitis [Unknown]
  - Weight decreased [Unknown]
  - Fat tissue decreased [Unknown]
  - Herpes zoster [Unknown]
  - Depression [Unknown]
  - Croup infectious [Unknown]
  - Joint injury [Unknown]

NARRATIVE: CASE EVENT DATE: 2008
